FAERS Safety Report 19247204 (Version 1)
Quarter: 2021Q2

REPORT INFORMATION
  Report Type: Spontaneous
  Country: GB (occurrence: GB)
  Receive Date: 20210512
  Receipt Date: 20210512
  Transmission Date: 20210717
  Serious: Yes (Congenital Anomaly, Other)
  Sender: FDA-Public Use
  Company Number: GB-JNJFOC-20210505167

PATIENT
  Age: 1 Hour
  Sex: Female

DRUGS (2)
  1. DARUNAVIR [Suspect]
     Active Substance: DARUNAVIR
     Indication: RETROVIRAL INFECTION
     Dosage: 1 TABLET
     Route: 064
     Dates: start: 20180501, end: 20190227
  2. GENVOYA [Suspect]
     Active Substance: COBICISTAT\ELVITEGRAVIR\EMTRICITABINE\TENOFOVIR ALAFENAMIDE FUMARATE
     Indication: RETROVIRAL INFECTION
     Dosage: 1 TABLET
     Route: 064
     Dates: start: 20180501, end: 20190227

REACTIONS (2)
  - Foetal exposure during pregnancy [Recovered/Resolved]
  - Congenital genitourinary abnormality [Unknown]

NARRATIVE: CASE EVENT DATE: 20190227
